FAERS Safety Report 15190240 (Version 1)
Quarter: 2018Q3

REPORT INFORMATION
  Report Type: Spontaneous
  Country: US (occurrence: US)
  Receive Date: 20180625
  Receipt Date: 20180625
  Transmission Date: 20181010
  Serious: Yes (Other)
  Sender: FDA-Public Use
  Company Number: None

PATIENT
  Age: 9 Year
  Sex: Male
  Weight: 27 kg

DRUGS (5)
  1. VYVANSE [Concomitant]
     Active Substance: LISDEXAMFETAMINE DIMESYLATE
  2. HUMALOG [Concomitant]
     Active Substance: INSULIN LISPRO
  3. CETIRIZINE (GENERIC) [Concomitant]
  4. DEXCOM G5 [Concomitant]
  5. HUMALOG [Suspect]
     Active Substance: INSULIN LISPRO
     Indication: TYPE 1 DIABETES MELLITUS
     Dosage: ?          OTHER FREQUENCY:CONTINUOUS INFUSIO;?
     Route: 058
     Dates: start: 20180612, end: 20180625

REACTIONS (3)
  - Product quality issue [None]
  - Drug ineffective [None]
  - Blood glucose increased [None]

NARRATIVE: CASE EVENT DATE: 20180625
